FAERS Safety Report 9008888 (Version 2)
Quarter: 2013Q3

REPORT INFORMATION
  Report Type: Report from Study
  Country: US (occurrence: US)
  Receive Date: 20130111
  Receipt Date: 20130729
  Transmission Date: 20140515
  Serious: Yes (Hospitalization)
  Sender: FDA-Public Use
  Company Number: US-TEVA-378030USA

PATIENT
  Age: 60 Year
  Sex: Female
  Weight: 113.5 kg

DRUGS (16)
  1. CUSTIRSEN [Suspect]
     Indication: GALLBLADDER CANCER
     Dosage: DAYS 1,8,15
     Route: 042
     Dates: start: 20120827
  2. PACLITAXEL [Suspect]
  3. CARBOPLATIN [Suspect]
  4. ONDANSETRON [Concomitant]
     Dates: start: 20120813
  5. DIPHENHYDRAMINE [Concomitant]
     Dates: start: 20120813
  6. DEXAMETHASONE [Concomitant]
     Dates: start: 20120813
  7. FAMOTIDINE [Concomitant]
     Dates: start: 20120813
  8. ACETAMINOPHEN [Concomitant]
     Dates: start: 20120904
  9. PROCHLORPERAZINE [Concomitant]
     Dates: start: 20120813
  10. RANITIDINE [Concomitant]
     Dosage: 150 MILLIGRAM DAILY;
     Dates: start: 20120830
  11. FLUTICASONE PROPIONATE [Concomitant]
     Dates: start: 20120924
  12. CODEINE PHOSPH. W/GUAIFENESIN/PHENYLPROPANOLA [Concomitant]
     Dates: start: 20120805
  13. HYDROCODONE W/ACETAMINOPHEN [Concomitant]
     Dates: start: 20100415
  14. LISINOPRIL [Concomitant]
     Dates: start: 2011
  15. CYCLOBENZAPRINE [Concomitant]
     Dates: start: 20120913
  16. NOVOLIN 30R [Concomitant]
     Dates: start: 20110216

REACTIONS (2)
  - Pneumonia [Recovered/Resolved]
  - Febrile neutropenia [Recovered/Resolved]
